FAERS Safety Report 20669966 (Version 1)
Quarter: 2022Q2

REPORT INFORMATION
  Report Type: Spontaneous
  Country: CN (occurrence: None)
  Receive Date: 20220404
  Receipt Date: 20220404
  Transmission Date: 20220720
  Serious: Yes (Death, Other)
  Sender: FDA-Public Use
  Company Number: CN-ROCHE-3060144

PATIENT
  Age: 60 Year
  Sex: Female
  Weight: 56 kg

DRUGS (16)
  1. AVASTIN [Suspect]
     Active Substance: BEVACIZUMAB
     Indication: Colon cancer
     Dosage: ON DAY 0 FOR 6 CYCLES, ONE CYCLE WAS 14 DAYS
     Route: 065
     Dates: start: 201909, end: 201912
  2. OXALIPLATIN [Suspect]
     Active Substance: OXALIPLATIN
     Indication: Colon cancer
     Dosage: ON DAY 1 FOR 3 CYCLES, ONE CYCLE WAS 14 DAYS
     Route: 065
     Dates: start: 201907, end: 201909
  3. OXALIPLATIN [Suspect]
     Active Substance: OXALIPLATIN
     Dosage: ON DAY 1 FOR 6 CYCLES, ONE CYCLE WAS 14 DAYS
     Route: 065
     Dates: start: 201909, end: 201912
  4. FLUOROURACIL [Suspect]
     Active Substance: FLUOROURACIL
     Indication: Colon cancer
     Dosage: AT 500MG ON DAY 1, CONTINUOUS INTRAVENOUS DRIP AT 4250MG IN 46 HOURS FOR 8 CYCLES, ONE CYCLE WAS 14
     Route: 065
     Dates: start: 201808, end: 201812
  5. FLUOROURACIL [Suspect]
     Active Substance: FLUOROURACIL
     Dosage: AT 500MG ON DAY 1, CONTINUOUS INTRAVENOUS DRIP AT 4250MG IN 46 HOURS FOR 4 CYCLES, ONE CYCLE WAS 14
     Route: 065
     Dates: start: 201901, end: 201902
  6. FLUOROURACIL [Suspect]
     Active Substance: FLUOROURACIL
     Dosage: AT 500MG ON DAY 1, CONTINUOUS INTRAVENOUS DRIP AT 350MG FOR 3 CYCLES, ONE CYCLE WAS 14 DAYS
     Route: 065
     Dates: start: 201907, end: 201909
  7. FLUOROURACIL [Suspect]
     Active Substance: FLUOROURACIL
     Dosage: AT 500MG ON DAY 1, CONTINUOUS INTRAVENOUS DRIP AT 350MG FOR 3 CYCLES, ONE CYCLE WAS 14 DAYS
     Route: 065
     Dates: start: 201909, end: 201912
  8. CETUXIMAB [Suspect]
     Active Substance: CETUXIMAB
     Indication: Colon cancer
     Dosage: ON DAY 0 FOR 8 CYCLES, ONE CYCLE WAS 14 DAYS
     Route: 065
     Dates: start: 201808, end: 201812
  9. CETUXIMAB [Suspect]
     Active Substance: CETUXIMAB
     Dosage: ON DAY 0 FOR 4 CYCLES, ONE CYCLE WAS 14 DAYS
     Route: 065
     Dates: start: 201901, end: 201902
  10. CETUXIMAB [Suspect]
     Active Substance: CETUXIMAB
     Dosage: ONE CYCLE WAS 4 WEEKS
     Route: 065
     Dates: start: 201912, end: 202003
  11. OTERACIL POTASSIUM [Suspect]
     Active Substance: OTERACIL POTASSIUM
     Indication: Colon cancer
     Dosage: ONE CYCLE WAS 4 WEEKS
     Route: 065
     Dates: start: 201912, end: 202003
  12. FRUQUINTINIB [Suspect]
     Active Substance: FRUQUINTINIB
     Indication: Colon cancer
     Dosage: FROM DAY 1 TO DAY 21, ONE CYCLE WAS 4 WEEKS
     Route: 065
     Dates: start: 201912, end: 202003
  13. IRINOTECAN [Concomitant]
     Active Substance: IRINOTECAN
     Indication: Colon cancer
     Dosage: ON DAY 1 FOR 8 CYCLES, ONE CYCLE WAS 14 DAYS
     Dates: start: 201808, end: 201812
  14. IRINOTECAN [Concomitant]
     Active Substance: IRINOTECAN
     Dosage: ON DAY 1 FOR 4 CYCLES, ONE CYCLE WAS 14 DAYS
     Dates: start: 201901, end: 201902
  15. CAPECITABINE [Concomitant]
     Active Substance: CAPECITABINE
     Indication: Colon cancer
     Dosage: FROM DAY 1 TO DAY 14 FOR 6 CYCLES, ONE CYCLE WAS 3 WEEKS. THE MANUFACTURER WAS NOT ROCHE
     Route: 048
     Dates: start: 201901, end: 201902
  16. CAMRELIZUMAB [Concomitant]
     Active Substance: CAMRELIZUMAB
     Indication: Colon cancer
     Dosage: ON DAY 0 FOR 3 CYCLES, ONE CYCLE WAS 14 DAYS
     Dates: start: 201907, end: 201909

REACTIONS (4)
  - Myelosuppression [Unknown]
  - Death [Fatal]
  - Gastrointestinal disorder [Unknown]
  - Hypertension [Unknown]

NARRATIVE: CASE EVENT DATE: 20200401
